FAERS Safety Report 5483479-6 (Version None)
Quarter: 2007Q4

REPORT INFORMATION
  Report Type: 
  Country: None (occurrence: None)
  Receive Date: 20071012
  Receipt Date: 20070928
  Transmission Date: 20080405
  Serious: Yes (Hospitalization)
  Sender: FDA-Public Use
  Company Number: PHBS2007JP16278

PATIENT
  Age: 79 Year
  Sex: Male

DRUGS (3)
  1. DILTIAZEM HCL [Suspect]
     Route: 048
  2. VALTREX [Concomitant]
     Route: 048
  3. LOPRESSOR [Suspect]
     Indication: HYPERTENSION
     Route: 048

REACTIONS (6)
  - BRADYCARDIA [None]
  - CARDIAC ARREST [None]
  - HEART RATE DECREASED [None]
  - SINUS ARREST [None]
  - SUPRAVENTRICULAR EXTRASYSTOLES [None]
  - SYNCOPE [None]
